FAERS Safety Report 7898105-6 (Version None)
Quarter: 2011Q4

REPORT INFORMATION
  Report Type: 
  Country: None (occurrence: None)
  Receive Date: 20111107
  Receipt Date: 20111026
  Transmission Date: 20120403
  Serious: Yes (Hospitalization)
  Sender: FDA-Public Use
  Company Number: US-BAYER-2011-065941

PATIENT
  Age: 42 Year
  Sex: Female
  Weight: 79 kg

DRUGS (6)
  1. PREVACID [Concomitant]
     Dosage: 30 MG, QD
     Route: 048
     Dates: start: 20080614
  2. ADVAIR DISKUS 100/50 [Concomitant]
     Indication: ASTHMA
     Dosage: UNK UNK, BID
     Dates: start: 20050101
  3. YAZ [Suspect]
     Dosage: UNK
     Dates: start: 20080227, end: 20080614
  4. NASONEX [Concomitant]
     Dosage: UNK UNK, QD
     Route: 045
     Dates: start: 20080614
  5. SINGULAIR [Concomitant]
     Indication: ASTHMA
     Dosage: 10 MG, QD
     Route: 048
     Dates: start: 20050101
  6. ALBUTEROL [Concomitant]
     Dosage: 2 MG, PRN
     Dates: start: 20080614

REACTIONS (8)
  - CEREBROVASCULAR ACCIDENT [None]
  - MOBILITY DECREASED [None]
  - FALL [None]
  - INJURY [None]
  - FEAR [None]
  - DYSARTHRIA [None]
  - PAIN [None]
  - NAUSEA [None]
